FAERS Safety Report 10736006 (Version 2)
Quarter: 2015Q1

REPORT INFORMATION
  Report Type: Spontaneous
  Country: FR (occurrence: FR)
  Receive Date: 20150126
  Receipt Date: 20150130
  Transmission Date: 20150721
  Serious: Yes (Death, Hospitalization)
  Sender: FDA-Public Use
  Company Number: FR-JNJFOC-20150109325

PATIENT
  Age: 62 Year
  Sex: Female
  Weight: 103 kg

DRUGS (14)
  1. DICETEL [Concomitant]
     Active Substance: PINAVERIUM BROMIDE
     Route: 065
  2. REMICADE [Suspect]
     Active Substance: INFLIXIMAB
     Indication: ANKYLOSING SPONDYLITIS
     Dosage: DAY 1
     Route: 042
     Dates: start: 20141010
  3. REMICADE [Suspect]
     Active Substance: INFLIXIMAB
     Indication: ANKYLOSING SPONDYLITIS
     Dosage: DAY 45
     Route: 042
     Dates: start: 20141121
  4. GENTAMICIN. [Concomitant]
     Active Substance: GENTAMICIN
     Route: 042
  5. LEVOTHYROX [Concomitant]
     Active Substance: LEVOTHYROXINE
     Dosage: IN MORNING
     Route: 065
  6. NAPROSYNE [Concomitant]
     Active Substance: NAPROXEN
     Route: 065
  7. REMICADE [Suspect]
     Active Substance: INFLIXIMAB
     Indication: ANKYLOSING SPONDYLITIS
     Dosage: DAY 15
     Route: 042
  8. LAMALINE [Concomitant]
     Active Substance: ACETAMINOPHEN\CAFFEINE\OPIUM
     Route: 065
  9. KENZEN [Suspect]
     Active Substance: CANDESARTAN
     Indication: HYPERTENSION
     Dosage: IN MORNING
     Route: 048
     Dates: start: 20141205, end: 20141220
  10. LOXEN [Suspect]
     Active Substance: NICARDIPINE HYDROCHLORIDE
     Indication: HYPERTENSION
     Dosage: 2DF, MORNING AND EVENING
     Route: 065
     Dates: start: 20141208, end: 20141220
  11. CEFOTAXIME [Concomitant]
     Active Substance: CEFOTAXIME\CEFOTAXIME SODIUM
     Route: 065
  12. OMEPRAZOLE. [Concomitant]
     Active Substance: OMEPRAZOLE
     Route: 065
  13. DAFALGAN CODEINE [Concomitant]
     Active Substance: ACETAMINOPHEN\CODEINE PHOSPHATE
     Route: 065
     Dates: start: 20141205
  14. AMOXICILLIN. [Concomitant]
     Active Substance: AMOXICILLIN
     Indication: OROPHARYNGEAL PAIN
     Route: 065
     Dates: start: 20141215, end: 20141217

REACTIONS (8)
  - Ischaemic stroke [Fatal]
  - Respiratory failure [Fatal]
  - Sepsis [Fatal]
  - Leukoencephalopathy [Unknown]
  - Oropharyngeal pain [Unknown]
  - Acute sinusitis [Fatal]
  - Meningitis [Fatal]
  - Cerebral venous thrombosis [Fatal]

NARRATIVE: CASE EVENT DATE: 20141215
